FAERS Safety Report 9959880 (Version 1)
Quarter: 2014Q1

REPORT INFORMATION
  Report Type: Report from Study
  Country: US (occurrence: US)
  Receive Date: 20140305
  Receipt Date: 20140305
  Transmission Date: 20141002
  Serious: No
  Sender: FDA-Public Use
  Company Number: US-ABBVIE-13P-163-1103060-00

PATIENT
  Age: 49 Year
  Sex: Female

DRUGS (4)
  1. HUMIRA [Suspect]
     Indication: PSORIASIS
     Dosage: INITIAL DOSE
     Dates: start: 20130517
  2. HUMIRA [Suspect]
  3. UNKNOWN CREAM [Concomitant]
     Indication: PSORIASIS
  4. LOTION [Concomitant]
     Indication: PSORIASIS

REACTIONS (1)
  - Pruritus [Recovering/Resolving]
